FAERS Safety Report 8496419-2 (Version None)
Quarter: 2012Q2

REPORT INFORMATION
  Report Type: 
  Country: None (occurrence: None)
  Receive Date: 20120405
  Receipt Date: 20091229
  Transmission Date: 20120825
  Serious: Yes (Other)
  Sender: FDA-Public Use
  Company Number: PHHY2009US56707

PATIENT
  Age: 68 Year
  Sex: Female
  Weight: 70.3 kg

DRUGS (1)
  1. RECLAST [Suspect]
     Indication: OSTEOPOROSIS POSTMENOPAUSAL
     Dosage: 5 MG, INTRAVENOUS
     Route: 042
     Dates: start: 20091211, end: 20091211

REACTIONS (6)
  - EYE PAIN [None]
  - VISION BLURRED [None]
  - OCULAR HYPERAEMIA [None]
  - PHOTOPHOBIA [None]
  - UVEITIS [None]
  - LACRIMATION INCREASED [None]
